FAERS Safety Report 6006860-5 (Version None)
Quarter: 2008Q4

REPORT INFORMATION
  Report Type: 
  Country: None (occurrence: None)
  Receive Date: 20081217
  Receipt Date: 20071107
  Transmission Date: 20090506
  Serious: No
  Sender: FDA-Public Use
  Company Number: US-ASTRAZENECA-2007UW25891

PATIENT
  Age: 64 Year
  Sex: Female
  Weight: 85.3 kg

DRUGS (4)
  1. CRESTOR [Suspect]
     Indication: BLOOD CHOLESTEROL
     Dosage: SAMPLE PACK
     Route: 048
     Dates: start: 20071104
  2. PAXIL [Concomitant]
  3. AMITRIPTYLINE HCL [Concomitant]
  4. ALPRAZOLAM [Concomitant]

REACTIONS (3)
  - CHILLS [None]
  - MYALGIA [None]
  - PYREXIA [None]
